FAERS Safety Report 8919805 (Version 1)
Quarter: 2012Q4

REPORT INFORMATION
  Report Type: 
  Country: US (occurrence: US)
  Receive Date: 20121121
  Receipt Date: 20121121
  Transmission Date: 20130627
  Serious: No
  Sender: FDA-Public Use
  Company Number: US-009507513-1211USA008248

PATIENT
  Sex: Male

DRUGS (2)
  1. PEGINTRON [Suspect]
     Indication: HEPATITIS C
     Dosage: UNK
     Dates: start: 20101207, end: 20110607
  2. RIBAVIRIN [Suspect]
     Indication: HEPATITIS C
     Dosage: UNK
     Dates: start: 20101207, end: 20110607

REACTIONS (5)
  - Anaemia [Unknown]
  - Abasia [Unknown]
  - Feeling abnormal [Unknown]
  - Visual impairment [Unknown]
  - Therapeutic response decreased [Unknown]
